FAERS Safety Report 4813886-3 (Version None)
Quarter: 2005Q4

REPORT INFORMATION
  Report Type: 
  Country: None (occurrence: None)
  Receive Date: 20051028
  Receipt Date: 20050401
  Transmission Date: 20060501
  Serious: No
  Sender: FDA-Public Use
  Company Number: US-GLAXOSMITHKLINE-A0552334A

PATIENT
  Age: 58 Year
  Sex: Female

DRUGS (6)
  1. ADVAIR DISKUS 100/50 [Suspect]
     Indication: ASTHMA
     Route: 055
     Dates: start: 20000101
  2. WELLBUTRIN XL [Suspect]
     Indication: PANIC ATTACK
     Dosage: 300MG PER DAY
     Route: 048
     Dates: start: 20050301
  3. NEXIUM [Concomitant]
  4. VYTORIN [Concomitant]
  5. ESTRADERM [Concomitant]
  6. LEXAPRO [Concomitant]

REACTIONS (5)
  - CRYING [None]
  - DISTURBANCE IN ATTENTION [None]
  - HEART RATE INCREASED [None]
  - OESOPHAGEAL DYSPLASIA [None]
  - TREMOR [None]
